FAERS Safety Report 7681742-1 (Version None)
Quarter: 2011Q3

REPORT INFORMATION
  Report Type: 
  Country: None (occurrence: None)
  Receive Date: 20110812
  Receipt Date: 20110804
  Transmission Date: 20111222
  Serious: Yes (Hospitalization, Congenital Anomaly, Other)
  Sender: FDA-Public Use
  Company Number: US-RB-005696-10

PATIENT
  Sex: Female

DRUGS (2)
  1. SUBOXONE [Suspect]
     Indication: DRUG DEPENDENCE
     Dosage: 8-16 MG DAILY
     Route: 063
     Dates: start: 20100201, end: 20100801
  2. SUBOXONE [Suspect]
     Dosage: 8-16 MG DAILY
     Route: 064
     Dates: start: 20090501, end: 20100222

REACTIONS (7)
  - SMALL FOR DATES BABY [None]
  - DEVELOPMENTAL DELAY [None]
  - VENTRICULAR SEPTAL DEFECT [None]
  - MATERNAL EXPOSURE DURING PREGNANCY [None]
  - TREMOR [None]
  - EXPOSURE DURING BREAST FEEDING [None]
  - SPEECH DISORDER DEVELOPMENTAL [None]
